FAERS Safety Report 5868443-7 (Version None)
Quarter: 2008Q3

REPORT INFORMATION
  Report Type: 
  Country: None (occurrence: None)
  Receive Date: 20080903
  Receipt Date: 20080822
  Transmission Date: 20090109
  Serious: Yes (Disabling)
  Sender: FDA-Public Use
  Company Number: SE-ASTRAZENECA-2008SE04096

PATIENT
  Sex: Female

DRUGS (2)
  1. XYLOCAIN+ADRENALINE [Suspect]
     Indication: LOCAL ANAESTHESIA
     Dosage: 25-30 ML
     Route: 058
     Dates: start: 20060426
  2. XANOR [Concomitant]
     Route: 048

REACTIONS (2)
  - EYE DISORDER [None]
  - HYPOAESTHESIA [None]
